FAERS Safety Report 24084528 (Version 1)
Quarter: 2024Q3

REPORT INFORMATION
  Report Type: Spontaneous
  Country: US (occurrence: None)
  Receive Date: 20240711
  Receipt Date: 20240711
  Transmission Date: 20241016
  Serious: Yes (Other)
  Sender: Public
  Company Number: None

PATIENT
  Age: 63 Year
  Sex: Male

DRUGS (1)
  1. TEMOZOLOMIDE [Suspect]
     Active Substance: TEMOZOLOMIDE
     Indication: Brain neoplasm malignant
     Dosage: FREQ: TAKE 1 CAPSULE BY MOUTH ONCE DAILY. START WHEN YOU START RADIATION. TAKE ON WEEKENDS DURING CH
     Route: 048
     Dates: start: 20240605

REACTIONS (2)
  - Cerebral haemorrhage [None]
  - Post procedural complication [None]

NARRATIVE: CASE EVENT DATE: 20240512
